FAERS Safety Report 17568074 (Version 2)
Quarter: 2020Q1

REPORT INFORMATION
  Report Type: Spontaneous
  Country: PE (occurrence: PE)
  Receive Date: 20200320
  Receipt Date: 20200331
  Transmission Date: 20200409
  Serious: Yes (Other)
  Sender: FDA-Public Use
  Company Number: PE-US-PROVELL PHARMACEUTICALS LLC-9125197

PATIENT
  Sex: Female

DRUGS (3)
  1. LEVOTHYROXINE. [Suspect]
     Active Substance: LEVOTHYROXINE
     Dosage: 1 AND HALF TABLET
  2. LEVOTHYROXINE. [Suspect]
     Active Substance: LEVOTHYROXINE
     Dates: start: 2018
  3. LEVOTHYROXINE. [Suspect]
     Active Substance: LEVOTHYROXINE
     Indication: PRODUCT USED FOR UNKNOWN INDICATION
     Dosage: ONCE A DAY (UNKNOWN DOSAGE)

REACTIONS (10)
  - Thyroid mass [Unknown]
  - Tooth injury [Unknown]
  - Thyroxine free decreased [Unknown]
  - Cyst [Unknown]
  - Blood thyroid stimulating hormone increased [Unknown]
  - Gastric disorder [Unknown]
  - Bone disorder [Unknown]
  - Weight increased [Unknown]
  - Insomnia [Unknown]
  - Alopecia [Unknown]
